FAERS Safety Report 4981093-X (Version None)
Quarter: 2006Q2

REPORT INFORMATION
  Report Type: 
  Country: None (occurrence: None)
  Receive Date: 20060418
  Receipt Date: 20060329
  Transmission Date: 20061013
  Serious: Yes (Other)
  Sender: FDA-Public Use
  Company Number: US200603004097

PATIENT
  Age: 96 Year
  Sex: Female

DRUGS (4)
  1. FORTEO [Suspect]
     Indication: OSTEOPOROSIS
     Dates: start: 20050101, end: 20060301
  2. FORTEO [Concomitant]
  3. CALCIUM GLUCONATE [Concomitant]
  4. ERGOCALCIFEROL (VITAMIN D) [Concomitant]

REACTIONS (2)
  - BONE DENSITY DECREASED [None]
  - HYPERCALCAEMIA [None]
